FAERS Safety Report 5956838-2 (Version None)
Quarter: 2008Q4

REPORT INFORMATION
  Report Type: 
  Country: None (occurrence: None)
  Receive Date: 20081106
  Receipt Date: 20071004
  Transmission Date: 20090506
  Serious: Yes (Other)
  Sender: FDA-Public Use
  Company Number: US200710001266

PATIENT
  Age: 32 Year
  Sex: Female

DRUGS (3)
  1. PROZAC [Suspect]
  2. TRIPTORELIN (TRIPTORELIN) [Concomitant]
  3. TAMOXIFEN CITRATE [Concomitant]

REACTIONS (1)
  - HEPATIC STEATOSIS [None]
